FAERS Safety Report 23666924 (Version 1)
Quarter: 2024Q1

REPORT INFORMATION
  Report Type: Spontaneous
  Country: US (occurrence: US)
  Receive Date: 20240325
  Receipt Date: 20240325
  Transmission Date: 20240410
  Serious: Yes (Other)
  Sender: FDA-Public Use
  Company Number: US-SA-SAC20240320001177

PATIENT
  Sex: Male

DRUGS (2)
  1. DUPIXENT [Suspect]
     Active Substance: DUPILUMAB
     Indication: Nasal polyps
     Dosage: 300 MG, QOW
     Route: 058
     Dates: start: 2022
  2. DUPIXENT [Suspect]
     Active Substance: DUPILUMAB
     Dosage: 300 MG, QOW
     Route: 058
     Dates: start: 202403

REACTIONS (8)
  - Pneumonia [Unknown]
  - Bronchitis [Unknown]
  - Nasal polyps [Unknown]
  - Nasal obstruction [Unknown]
  - Dyspnoea [Unknown]
  - Nasal congestion [Unknown]
  - Rhinorrhoea [Unknown]
  - Condition aggravated [Unknown]
